FAERS Safety Report 4577705-5 (Version None)
Quarter: 2005Q1

REPORT INFORMATION
  Report Type: 
  Country: None (occurrence: None)
  Receive Date: 20050127
  Receipt Date: 20040826
  Transmission Date: 20050727
  Serious: No
  Sender: FDA-Public Use
  Company Number: USA040876554

PATIENT
  Age: 39 Year
  Sex: Male

DRUGS (3)
  1. ZYPREXA [Suspect]
     Dosage: 10 MG IN THE MORNING
     Dates: start: 20040601
  2. STRATTERA [Suspect]
     Indication: ATTENTION DEFICIT/HYPERACTIVITY DISORDER
     Dosage: 40 MG
     Dates: start: 20040801
  3. PROVIGIL (MODAFIINIL) [Concomitant]

REACTIONS (9)
  - ALOPECIA [None]
  - DECREASED INTEREST [None]
  - DEPRESSION [None]
  - GENITAL RASH [None]
  - HYPERSOMNIA [None]
  - INSOMNIA [None]
  - MEMORY IMPAIRMENT [None]
  - MOOD SWINGS [None]
  - THINKING ABNORMAL [None]
